FAERS Safety Report 6598040-X (Version None)
Quarter: 2010Q1

REPORT INFORMATION
  Report Type: 
  Country: None (occurrence: None)
  Receive Date: 20100216
  Receipt Date: 20100128
  Transmission Date: 20100710
  Serious: Yes (Disabling)
  Sender: FDA-Public Use
  Company Number: GB-2010-0201

PATIENT
  Sex: Female

DRUGS (6)
  1. NAVELBINE [Suspect]
     Dates: start: 20060515, end: 20060615
  2. HERCEPTIN [Suspect]
     Dates: start: 20050915, end: 20060615
  3. DOCETAXEL [Suspect]
     Dates: start: 20050915, end: 20060915
  4. XELODA [Suspect]
     Dates: start: 20060715, end: 20061215
  5. LANSOPRAZOLE [Concomitant]
  6. PYRIDOXINE HYDROCHLORIDE [Concomitant]

REACTIONS (1)
  - DERMATOMYOSITIS [None]
